FAERS Safety Report 24588879 (Version 6)
Quarter: 2025Q2

REPORT INFORMATION
  Report Type: Report from Study
  Country: US (occurrence: US)
  Receive Date: 20241107
  Receipt Date: 20250512
  Transmission Date: 20250717
  Serious: Yes (Hospitalization)
  Sender: PFIZER
  Company Number: US-PFIZER INC-202400295077

PATIENT
  Age: 74 Year
  Sex: Male
  Weight: 84.8 kg

DRUGS (6)
  1. VYNDAMAX [Suspect]
     Active Substance: TAFAMIDIS
     Indication: Amyloidosis
     Dosage: 61 MG, TAKE 1 CAPSULE BY MOUTH DAILY
     Route: 048
     Dates: start: 20240821
  2. OXYBUTYNIN [Concomitant]
     Active Substance: OXYBUTYNIN
  3. ELIQUIS [Concomitant]
     Active Substance: APIXABAN
  4. LISINOPRIL [Concomitant]
     Active Substance: LISINOPRIL
  5. LOVASTATIN [Concomitant]
     Active Substance: LOVASTATIN
  6. FARXIGA [Concomitant]
     Active Substance: DAPAGLIFLOZIN PROPANEDIOL

REACTIONS (3)
  - Exeresis [Unknown]
  - Dizziness postural [Unknown]
  - Palpitations [Unknown]
